FAERS Safety Report 8856905 (Version 1)
Quarter: 2012Q4

REPORT INFORMATION
  Report Type: Spontaneous
  Country: AU (occurrence: None)
  Receive Date: 20121019
  Receipt Date: 20121019
  Transmission Date: 20130627
  Serious: Yes (Hospitalization, Other)
  Sender: FDA-Public Use
  Company Number: 2012P1060863

PATIENT
  Age: 47 Year
  Sex: Male

DRUGS (4)
  1. PHENYTOIN (NO PREF. NAME) [Suspect]
     Indication: CONVULSION PROPHYLAXIS
  2. PHENYTOIN (NO PREF. NAME) [Suspect]
     Indication: CONVULSION PROPHYLAXIS
  3. RISPERIDONE DEPOT [Concomitant]
  4. BENZYL PENICILLIN [Concomitant]

REACTIONS (5)
  - Rhabdomyolysis [None]
  - Malaise [None]
  - Chills [None]
  - Lymphadenopathy [None]
  - Drug reaction with eosinophilia and systemic symptoms [None]
